FAERS Safety Report 11394939 (Version 1)
Quarter: 2015Q3

REPORT INFORMATION
  Report Type: Spontaneous
  Country: US (occurrence: None)
  Receive Date: 20150817
  Receipt Date: 20150817
  Transmission Date: 20151125
  Serious: Yes (Other)
  Sender: FDA-Public Use
  Company Number: NSR_02211_2015

PATIENT
  Sex: Female
  Weight: 70.31 kg

DRUGS (1)
  1. HYDROXYZINE [Suspect]
     Active Substance: HYDROXYZINE\HYDROXYZINE HYDROCHLORIDE
     Indication: NEURODERMATITIS
     Dosage: (5 MG, 5 MG, EVERY 48 HOURS ORAL)
     Route: 048
     Dates: start: 20150801, end: 20150806

REACTIONS (5)
  - Product odour abnormal [None]
  - Feeling abnormal [None]
  - Disturbance in attention [None]
  - Mental impairment [None]
  - Fatigue [None]

NARRATIVE: CASE EVENT DATE: 2003
